FAERS Safety Report 5759381-9 (Version None)
Quarter: 2008Q2

REPORT INFORMATION
  Report Type: 
  Country: None (occurrence: None)
  Receive Date: 20080602
  Receipt Date: 20080522
  Transmission Date: 20081010
  Serious: Yes (Death, Other)
  Sender: FDA-Public Use
  Company Number: 2008JP002412

PATIENT
  Age: 68 Year
  Sex: Female

DRUGS (4)
  1. PROGRAF [Suspect]
     Indication: CORD BLOOD TRANSPLANT THERAPY
  2. MYCOPHENOLATE MOFETIL [Concomitant]
  3. ACYCLOVIR [Concomitant]
  4. FOSCARNET [Concomitant]

REACTIONS (4)
  - ENCEPHALITIS HERPES [None]
  - ENCEPHALITIS PROTOZOAL [None]
  - GLIOSIS [None]
  - PNEUMONIA [None]
